FAERS Safety Report 19559145 (Version 1)
Quarter: 2021Q3

REPORT INFORMATION
  Report Type: Spontaneous
  Country: US (occurrence: US)
  Receive Date: 20210715
  Receipt Date: 20210715
  Transmission Date: 20211014
  Serious: Yes (Other)
  Sender: FDA-Public Use
  Company Number: US-ENDO PHARMACEUTICALS INC-2021-010158

PATIENT
  Age: 58 Year
  Sex: Male

DRUGS (4)
  1. XIAFLEX [Suspect]
     Active Substance: COLLAGENASE CLOSTRIDIUM HISTOLYTICUM
     Dosage: 0.58 MG, ONCE EVERY 6WKS, 1 DAY APART, (CYCLE 1, INJECTION 2)
     Route: 026
  2. XIAFLEX [Suspect]
     Active Substance: COLLAGENASE CLOSTRIDIUM HISTOLYTICUM
     Indication: PEYRONIE^S DISEASE
     Dosage: 0.58 MG, ONCE EVERY 6WKS (CYCLE 2, INJECTION 2)
     Route: 026
  3. XIAFLEX [Suspect]
     Active Substance: COLLAGENASE CLOSTRIDIUM HISTOLYTICUM
     Dosage: 0.58 MG, ONCE EVERY 6WKS (CYCLE 1, INJECTION 1)
     Route: 026
  4. XIAFLEX [Suspect]
     Active Substance: COLLAGENASE CLOSTRIDIUM HISTOLYTICUM
     Dosage: 0.58 MG, ONCE EVERY 6WKS, 1 DAY APART, (CYCLE 2, INJECTION 1)
     Route: 026

REACTIONS (4)
  - Penis injury [Unknown]
  - Hernia [Unknown]
  - Ecchymosis [Unknown]
  - Penile swelling [Unknown]
